FAERS Safety Report 6268430-3 (Version None)
Quarter: 2009Q3

REPORT INFORMATION
  Report Type: 
  Country: None (occurrence: None)
  Receive Date: 20090715
  Receipt Date: 20090703
  Transmission Date: 20100115
  Serious: Yes (Hospitalization)
  Sender: FDA-Public Use
  Company Number: TW-PFIZER INC-2009231488

PATIENT
  Age: 25 Year

DRUGS (3)
  1. BLINDED *LAMOTRIGINE [Suspect]
     Indication: EPILEPSY
     Dosage: UNK
     Route: 048
     Dates: start: 20070814
  2. BLINDED *NO SUBJECT DRUG [Suspect]
     Indication: EPILEPSY
     Dosage: UNK
     Route: 048
     Dates: start: 20070814
  3. BLINDED PREGABALIN [Suspect]
     Indication: EPILEPSY
     Dosage: UNK
     Route: 048
     Dates: start: 20070814

REACTIONS (2)
  - FALL [None]
  - HEAD INJURY [None]
